FAERS Safety Report 4900388-9 (Version None)
Quarter: 2006Q1

REPORT INFORMATION
  Report Type: 
  Country: None (occurrence: None)
  Receive Date: 20060202
  Receipt Date: 20060119
  Transmission Date: 20060701
  Serious: Yes (Hospitalization, Other)
  Sender: FDA-Public Use
  Company Number: US200601003197

PATIENT
  Age: 60 Year
  Sex: Female

DRUGS (8)
  1. CYMBALTA [Suspect]
     Indication: DEPRESSION
     Dosage: 60 MG, EACH EVENING, ORAL
     Route: 048
     Dates: start: 20050201
  2. METFORMIN HCL [Concomitant]
  3. HYDROCHLOROTHIAZIDE [Concomitant]
  4. LISINOPRIL [Concomitant]
  5. LORAZEPAM [Concomitant]
  6. POTASSIUM (POTASSIUM) [Concomitant]
  7. GABAPENTIN [Concomitant]
  8. NEXIUM [Concomitant]

REACTIONS (4)
  - DIABETES MELLITUS [None]
  - KNEE OPERATION [None]
  - PROCEDURAL COMPLICATION [None]
  - SHOCK [None]
